FAERS Safety Report 21395208 (Version 1)
Quarter: 2022Q3

REPORT INFORMATION
  Report Type: Spontaneous
  Country: US (occurrence: None)
  Receive Date: 20220929
  Receipt Date: 20220929
  Transmission Date: 20221027
  Serious: Yes (Other)
  Sender: FDA-Public Use
  Company Number: None

PATIENT
  Age: 63 Year
  Sex: Female
  Weight: 63.9 kg

DRUGS (15)
  1. MOLNUPIRAVIR [Suspect]
     Active Substance: MOLNUPIRAVIR
     Indication: COVID-19
     Dosage: OTHER QUANTITY : 4 CAPSULE(S);?FREQUENCY : EVERY 12 HOURS;?
     Route: 048
     Dates: start: 20220926, end: 20220929
  2. ATORVASTATIN [Concomitant]
     Active Substance: ATORVASTATIN
  3. ANASTROZOLE [Concomitant]
     Active Substance: ANASTROZOLE
  4. CARDIZEM [Concomitant]
     Active Substance: DILTIAZEM HYDROCHLORIDE
  5. CALCIUM CITRATE [Concomitant]
     Active Substance: CALCIUM CITRATE
  6. VITAMIN D3 [Concomitant]
     Active Substance: CHOLECALCIFEROL
  7. ELIQUIS [Concomitant]
     Active Substance: APIXABAN
  8. PROPHYLAXIS [Concomitant]
  9. FOSAMAX [Concomitant]
     Active Substance: ALENDRONATE SODIUM
  10. LACTOBACILLUS ACIDOPHILUS [Concomitant]
     Active Substance: LACTOBACILLUS ACIDOPHILUS
  11. PROPAFENONE SR [Concomitant]
  12. SACCHROMYCESE [Concomitant]
  13. TAXOL [Concomitant]
     Active Substance: PACLITAXEL
  14. MUCINEX [Concomitant]
     Active Substance: GUAIFENESIN
  15. NASAL SALINE [Concomitant]
     Active Substance: SODIUM CHLORIDE

REACTIONS (4)
  - Swollen tongue [None]
  - Pharyngeal swelling [None]
  - Oxygen saturation decreased [None]
  - Dyspnoea [None]

NARRATIVE: CASE EVENT DATE: 20220929
